FAERS Safety Report 6896844-7 (Version None)
Quarter: 2010Q3

REPORT INFORMATION
  Report Type: 
  Country: None (occurrence: None)
  Receive Date: 20100729
  Receipt Date: 20100712
  Transmission Date: 20110219
  Serious: Yes (Death, Hospitalization)
  Sender: FDA-Public Use
  Company Number: CV20100352

PATIENT
  Age: 22 Year
  Sex: Male

DRUGS (2)
  1. PROPOFOL [Suspect]
     Indication: SEDATION
     Dosage: (90 - 100 MCG/KG/MIN) INTRAVENOUS (NOT OTHERWISE SPECIFIED)
     Route: 042
  2. FENTANYL [Concomitant]

REACTIONS (13)
  - AGITATION [None]
  - BLOOD CREATINE PHOSPHOKINASE INCREASED [None]
  - BRUGADA SYNDROME [None]
  - CIRCULATORY COLLAPSE [None]
  - CONDITION AGGRAVATED [None]
  - ELECTROCARDIOGRAM CHANGE [None]
  - GENERAL PHYSICAL HEALTH DETERIORATION [None]
  - HYPERKALAEMIA [None]
  - HYPOTENSION [None]
  - METABOLIC ACIDOSIS [None]
  - PROPOFOL INFUSION SYNDROME [None]
  - RENAL FAILURE [None]
  - TROPONIN I INCREASED [None]
